FAERS Safety Report 8492437-9 (Version None)
Quarter: 2012Q3

REPORT INFORMATION
  Report Type: 
  Country: None (occurrence: None)
  Receive Date: 20120706
  Receipt Date: 20120629
  Transmission Date: 20120928
  Serious: Yes (Other)
  Sender: FDA-Public Use
  Company Number: BR-PFIZER INC-2012054109

PATIENT
  Age: 49 Year
  Sex: Male
  Weight: 62 kg

DRUGS (5)
  1. HYDROCHLOROTHIAZIDE [Concomitant]
     Dosage: 5 MG (ONE TABLET), 1X/DAY
  2. VALSARTAN [Concomitant]
     Dosage: 160 MG, 2 TABLETS DAILY
  3. SUTENT [Suspect]
     Indication: GASTROINTESTINAL CARCINOMA
     Dosage: 50 MG, 1X/DAY
     Route: 048
     Dates: start: 20110710
  4. LEVOID [Concomitant]
     Dosage: 75 MG (ONE TABLET), 1X/DAY
  5. AMLODIPINE BESILATE [Concomitant]
     Dosage: 10 MG (ONE TABLET), 1X/DAY

REACTIONS (15)
  - AGEUSIA [None]
  - BLOOD PRESSURE INCREASED [None]
  - GLOSSODYNIA [None]
  - WOUND [None]
  - EAR INFECTION [None]
  - PAIN IN EXTREMITY [None]
  - BURNING SENSATION [None]
  - BLOOD PRESSURE ABNORMAL [None]
  - PROSTATE CANCER [None]
  - THYROID DISORDER [None]
  - PLATELET FUNCTION TEST ABNORMAL [None]
  - MUSCLE SPASMS [None]
  - BLISTER [None]
  - FLATULENCE [None]
  - NEOPLASM MALIGNANT [None]
